FAERS Safety Report 5802966-1 (Version None)
Quarter: 2008Q3

REPORT INFORMATION
  Report Type: 
  Country: None (occurrence: None)
  Receive Date: 20080703
  Receipt Date: 20080627
  Transmission Date: 20090109
  Serious: Yes (Other)
  Sender: FDA-Public Use
  Company Number: 2008SP003223

PATIENT
  Age: 61 Year
  Sex: Male
  Weight: 57.1532 kg

DRUGS (4)
  1. INTRON A [Suspect]
     Indication: MALIGNANT MELANOMA
     Dosage: 18 UNK;QD;SC
     Route: 058
     Dates: start: 20070910, end: 20080430
  2. HYDROCHLOROTHIAZIDE [Concomitant]
  3. MIRTAZAPINE [Concomitant]
  4. RANITIDINE HCL [Concomitant]

REACTIONS (1)
  - HAEMANGIOMA OF LIVER [None]
